FAERS Safety Report 4417177-4 (Version None)
Quarter: 2004Q2

REPORT INFORMATION
  Report Type: 
  Country: None (occurrence: None)
  Receive Date: 20040629
  Receipt Date: 20040302
  Transmission Date: 20050107
  Serious: Yes (Hospitalization, Disabling)
  Sender: FDA-Public Use
  Company Number: US_990521644

PATIENT
  Age: 61 Year
  Sex: Male
  Weight: 73 kg

DRUGS (11)
  1. INSULIN [Suspect]
     Indication: DIABETES MELLITUS
  2. HUMALOG [Suspect]
     Indication: DIABETES MELLITUS
     Dates: end: 20040101
  3. HUMULIN N [Suspect]
     Indication: DIABETES MELLITUS
     Dosage: 20 U/L IN THE MORNING
     Dates: start: 19980101
  4. HUMALOG [Suspect]
     Indication: DIABETES MELLITUS
     Dates: start: 20001024
  5. HUMULIN R [Suspect]
     Indication: DIABETES MELLITUS
     Dosage: 5 U DAY
     Dates: start: 19980101
  6. NPH ILETIN I (BEEF-PORK) [Suspect]
     Indication: DIABETES MELLITUS
     Dates: start: 19540101, end: 19980101
  7. ILETIN [Suspect]
     Indication: DIABETES MELLITUS
     Dates: start: 19540101, end: 19980101
  8. SYNTHROID [Concomitant]
  9. VALIUM [Concomitant]
  10. TYLENOL W/ CODEINE NO. 4 [Concomitant]
  11. LANTUS [Concomitant]

REACTIONS (12)
  - ASTHENIA [None]
  - BASEDOW'S DISEASE [None]
  - BLOOD GLUCOSE DECREASED [None]
  - BLOOD GLUCOSE INCREASED [None]
  - CONFUSIONAL STATE [None]
  - DIABETES MELLITUS [None]
  - DRUG INEFFECTIVE [None]
  - FATIGUE [None]
  - FEELING ABNORMAL [None]
  - SHOCK HYPOGLYCAEMIC [None]
  - SOMNOLENCE [None]
  - VISUAL ACUITY REDUCED [None]
